FAERS Safety Report 5197233-6 (Version None)
Quarter: 2007Q1

REPORT INFORMATION
  Report Type: 
  Country: None (occurrence: None)
  Receive Date: 20070103
  Receipt Date: 20061221
  Transmission Date: 20070707
  Serious: Yes (Death, Hospitalization, Congenital Anomaly, Other)
  Sender: FDA-Public Use
  Company Number: GB-ELI_LILLY_AND_COMPANY-GB200612003914

PATIENT
  Sex: Female
  Weight: 3.615 kg

DRUGS (2)
  1. FLUOXETINE [Suspect]
     Route: 064
  2. SERTRALINE HYDROCHLORIDE [Concomitant]
     Route: 064
     Dates: start: 20060323, end: 20060914

REACTIONS (5)
  - CAESAREAN SECTION [None]
  - CONGENITAL BRAIN DAMAGE [None]
  - DRUG EXPOSURE DURING PREGNANCY [None]
  - ENCEPHALITIS [None]
  - NEONATAL ASPHYXIA [None]
